FAERS Safety Report 20492783 (Version 2)
Quarter: 2022Q1

REPORT INFORMATION
  Report Type: Report from Study
  Country: US (occurrence: None)
  Receive Date: 20220219
  Receipt Date: 20220310
  Transmission Date: 20220423
  Serious: Yes (Life-Threatening, Hospitalization)
  Sender: FDA-Public Use
  Company Number: US-ROCHE-3029943

PATIENT
  Age: 61 Year
  Sex: Male
  Weight: 122 kg

DRUGS (2)
  1. OBINUTUZUMAB [Suspect]
     Active Substance: OBINUTUZUMAB
     Indication: Chronic lymphocytic leukaemia
     Dosage: 100 MG IV ON DAY 1, CYCLE 1?900 MG IV ON DAY 2, CYCLE 1?1000 MG IV ON DAY 8, CYCLE 1?1000 MG IV ON D
     Route: 042
     Dates: start: 20210204, end: 20210623
  2. IBRUTINIB [Suspect]
     Active Substance: IBRUTINIB
     Indication: Chronic lymphocytic leukaemia
     Dosage: LAST ADMINISTERED DATE 04/FEB/2022
     Route: 048

REACTIONS (3)
  - COVID-19 [Unknown]
  - Confusional state [Unknown]
  - Hypoxia [Unknown]

NARRATIVE: CASE EVENT DATE: 20220127
